FAERS Safety Report 7527865-9 (Version None)
Quarter: 2011Q2

REPORT INFORMATION
  Report Type: 
  Country: None (occurrence: None)
  Receive Date: 20110607
  Receipt Date: 20110529
  Transmission Date: 20111010
  Serious: Yes (Hospitalization)
  Sender: FDA-Public Use
  Company Number: IL-B.I. PHARMACEUTICALS,INC./RIDGEFIELD-2011-DE-02970RI

PATIENT
  Sex: Male

DRUGS (5)
  1. BETA-BLOCKER [Concomitant]
  2. PROPAFENONE HCL [Concomitant]
  3. PRADAXA [Suspect]
     Indication: ATRIAL FIBRILLATION
     Dosage: 110 MG
  4. SIMVASTATIN [Suspect]
  5. ASPIRIN [Concomitant]

REACTIONS (4)
  - HEPATIC ENZYME INCREASED [None]
  - DRUG INTERACTION [None]
  - MALAISE [None]
  - FATIGUE [None]
